FAERS Safety Report 8879804 (Version 1)
Quarter: 2012Q4

REPORT INFORMATION
  Report Type: 
  Country: BR (occurrence: BR)
  Receive Date: 20121101
  Receipt Date: 20121101
  Transmission Date: 20130627
  Serious: Yes (Other)
  Sender: FDA-Public Use
  Company Number: BR-BRISTOL-MYERS SQUIBB COMPANY-17064338

PATIENT
  Sex: Female

DRUGS (1)
  1. APROVEL TABS 150 MG [Suspect]

REACTIONS (3)
  - Fall [Unknown]
  - Femur fracture [Unknown]
  - Cerebrovascular accident [Unknown]
